FAERS Safety Report 4559352-4 (Version None)
Quarter: 2005Q1

REPORT INFORMATION
  Report Type: 
  Country: None (occurrence: None)
  Receive Date: 20050124
  Receipt Date: 20041124
  Transmission Date: 20050727
  Serious: Yes (Other)
  Sender: FDA-Public Use
  Company Number: PHRM2004DZ03484

PATIENT
  Age: 51 Year
  Sex: Male
  Weight: 100 kg

DRUGS (5)
  1. TENORMIN [Suspect]
  2. GLUCOPHAGE [Suspect]
     Route: 048
  3. CAPTOPRIL [Suspect]
  4. GLIBENCLAMIDE [Suspect]
  5. COTAREG [Suspect]
     Indication: ESSENTIAL HYPERTENSION
     Dosage: 1 DF, QD
     Route: 048
     Dates: start: 20041202, end: 20041205

REACTIONS (2)
  - DRUG INTERACTION [None]
  - HEADACHE [None]
